FAERS Safety Report 5349717-5 (Version None)
Quarter: 2007Q2

REPORT INFORMATION
  Report Type: 
  Country: None (occurrence: None)
  Receive Date: 20070607
  Receipt Date: 20070528
  Transmission Date: 20071010
  Serious: Yes (Death, Hospitalization, Other)
  Sender: FDA-Public Use
  Company Number: CL-ABBOTT-07P-034-0369625-00

PATIENT
  Sex: Male

DRUGS (3)
  1. KALETRA [Suspect]
     Indication: HIV INFECTION
     Route: 048
     Dates: start: 20070503, end: 20070513
  2. LAMIVUDINE [Concomitant]
     Indication: HIV INFECTION
     Route: 048
     Dates: start: 20070503, end: 20070513
  3. ZIDOVUDINE [Concomitant]
     Indication: HIV INFECTION
     Route: 048
     Dates: start: 20070503, end: 20070513

REACTIONS (9)
  - CRYPTOCOCCOSIS [None]
  - DECUBITUS ULCER [None]
  - DIARRHOEA [None]
  - NEUROLOGICAL SYMPTOM [None]
  - PLEURAL EFFUSION [None]
  - PNEUMONIA ESCHERICHIA [None]
  - PNEUMOTHORAX [None]
  - PSEUDOMONAL BACTERAEMIA [None]
  - PYREXIA [None]
